FAERS Safety Report 9011691 (Version 1)
Quarter: 2013Q1

REPORT INFORMATION
  Report Type: Spontaneous
  Country: BR (occurrence: BR)
  Receive Date: 20130107
  Receipt Date: 20130107
  Transmission Date: 20140127
  Serious: Yes (Other)
  Sender: FDA-Public Use
  Company Number: BR-AMGEN-BRASP2013000584

PATIENT
  Age: 45 Year
  Sex: Female
  Weight: 60 kg

DRUGS (4)
  1. ENBREL [Suspect]
     Indication: RHEUMATOID ARTHRITIS
     Dosage: 50 MG, ONCE EVERY 15 DAYS
     Dates: start: 201202
  2. ENBREL [Suspect]
     Dosage: UNK
  3. HUMIRA [Suspect]
     Dosage: UNK
     Dates: end: 201109
  4. METHOTREXATE [Concomitant]
     Dosage: 25 MG, ONCE WEEKLY
     Dates: start: 1995

REACTIONS (8)
  - Swelling face [Unknown]
  - Obstructive airways disorder [Unknown]
  - Cough [Unknown]
  - Dyspnoea [Unknown]
  - Injection site hypersensitivity [Unknown]
  - Injection site warmth [Unknown]
  - Injection site swelling [Unknown]
  - Influenza [Unknown]
